FAERS Safety Report 9182707 (Version 3)
Quarter: 2013Q2

REPORT INFORMATION
  Report Type: Spontaneous
  Country: US (occurrence: US)
  Receive Date: 20130322
  Receipt Date: 20130503
  Transmission Date: 20140414
  Serious: Yes (Other)
  Sender: FDA-Public Use
  Company Number: US-PFIZER INC-2013092221

PATIENT
  Sex: Female

DRUGS (2)
  1. LIPITOR [Suspect]
     Indication: BLOOD CHOLESTEROL INCREASED
     Dosage: 40 MG, UNK
  2. ACCUPRIL [Suspect]
     Dosage: UNK

REACTIONS (5)
  - Eye disorder [Unknown]
  - Fall [Unknown]
  - Thyroid disorder [Unknown]
  - Muscle spasms [Unknown]
  - Malaise [Unknown]
